FAERS Safety Report 9029879 (Version 3)
Quarter: 2013Q1

REPORT INFORMATION
  Report Type: Spontaneous
  Country: US (occurrence: US)
  Receive Date: 20130124
  Receipt Date: 20130227
  Transmission Date: 20140127
  Serious: Yes (Hospitalization)
  Sender: FDA-Public Use
  Company Number: US-GILEAD-2013-0068290

PATIENT
  Sex: Female

DRUGS (4)
  1. LETAIRIS [Suspect]
     Indication: PULMONARY ARTERIAL HYPERTENSION
     Dosage: 10 MG, QD
     Dates: start: 20081106
  2. LETAIRIS [Suspect]
     Dosage: 10 MG, QD
     Dates: start: 20090406
  3. REVATIO [Concomitant]
  4. EPOPROSTENOL [Concomitant]

REACTIONS (1)
  - Infusion site infection [Unknown]
